FAERS Safety Report 4299938-8 (Version None)
Quarter: 2004Q1

REPORT INFORMATION
  Report Type: 
  Country: None (occurrence: None)
  Receive Date: 20040220
  Receipt Date: 20031103
  Transmission Date: 20041129
  Serious: Yes (Hospitalization)
  Sender: FDA-Public Use
  Company Number: PHHO2003US13981

PATIENT
  Age: 84 Year
  Sex: Female
  Weight: 150 kg

DRUGS (5)
  1. VALSARTAN +/-HCTZ VS AMLODIPINE +/-HCTZ [Suspect]
     Indication: ESSENTIAL HYPERTENSION
     Dosage: LEVEL 1
     Route: 048
     Dates: start: 19980728
  2. VALSARTAN +/-HCTZ VS AMLODIPINE +/-HCTZ [Suspect]
     Dosage: LEVEL 2
     Route: 048
     Dates: end: 20031028
  3. VALSARTAN +/-HCTZ VS AMLODIPINE +/-HCTZ [Suspect]
     Dosage: NO TREATMENT
     Dates: start: 20031029
  4. DIOVAN [Suspect]
     Dosage: 160 MG, QD
     Route: 048
     Dates: start: 20031029
  5. PLETAL [Concomitant]
     Indication: INTERMITTENT CLAUDICATION
     Dosage: 50 MG, BID
     Route: 048
     Dates: start: 20030630

REACTIONS (11)
  - ACUTE PULMONARY OEDEMA [None]
  - AORTIC STENOSIS [None]
  - CARDIAC VALVE DISEASE [None]
  - CATHETERISATION CARDIAC [None]
  - CONCOMITANT DISEASE PROGRESSION [None]
  - CORONARY ARTERY DISEASE [None]
  - FATIGUE [None]
  - LUNG NEOPLASM [None]
  - MYOCARDIAL INFARCTION [None]
  - MYOCARDIAL ISCHAEMIA [None]
  - SINUS TACHYCARDIA [None]
